FAERS Safety Report 6912404-3 (Version None)
Quarter: 2010Q3

REPORT INFORMATION
  Report Type: 
  Country: None (occurrence: None)
  Receive Date: 20100806
  Receipt Date: 20080625
  Transmission Date: 20110219
  Serious: No
  Sender: FDA-Public Use
  Company Number: US-PFIZER INC-2008037008

PATIENT
  Sex: Female
  Weight: 61.4 kg

DRUGS (3)
  1. DETROL LA [Suspect]
     Indication: HYPERTONIC BLADDER
     Dates: end: 20080301
  2. VITAMIN TAB [Concomitant]
  3. CALCIUM [Concomitant]

REACTIONS (1)
  - DRUG INEFFECTIVE [None]
